FAERS Safety Report 19595041 (Version 2)
Quarter: 2021Q3

REPORT INFORMATION
  Report Type: Spontaneous
  Country: US (occurrence: US)
  Receive Date: 20210723
  Receipt Date: 20210913
  Transmission Date: 20211014
  Serious: Yes (Hospitalization)
  Sender: FDA-Public Use
  Company Number: US-ROCHE-2875951

PATIENT
  Sex: Female

DRUGS (1)
  1. ESBRIET [Suspect]
     Active Substance: PIRFENIDONE
     Indication: DYSPNOEA
     Dosage: TAKE 1 CAPSULE 3 TIMES DAILY, TAKE 2 CAPSULES 3 TIMES DAILY, TAKE 3 TABLETS 3 TIMES DAILY
     Route: 048

REACTIONS (1)
  - Condition aggravated [Unknown]
